FAERS Safety Report 6417283-9 (Version None)
Quarter: 2009Q4

REPORT INFORMATION
  Report Type: 
  Country: None (occurrence: None)
  Receive Date: 20091028
  Receipt Date: 20091015
  Transmission Date: 20100525
  Serious: Yes (Hospitalization)
  Sender: FDA-Public Use
  Company Number: PHHO2009NL12074

PATIENT
  Sex: Male
  Weight: 80 kg

DRUGS (5)
  1. RAD 666 RAD+TAB [Suspect]
     Indication: METASTATIC RENAL CELL CARCINOMA
     Dosage: 10MG/DAY
     Route: 048
     Dates: start: 20090824, end: 20090930
  2. RAD 666 RAD+TAB [Suspect]
     Dosage: 10 MG / DAY
     Dates: start: 20091001
  3. ORAMORPH SR [Concomitant]
  4. FENTANYL-100 [Concomitant]
  5. AXIL [Suspect]

REACTIONS (4)
  - CHEST PAIN [None]
  - MYOCARDIAL INFARCTION [None]
  - NAUSEA [None]
  - VOMITING [None]
